FAERS Safety Report 9393608 (Version 1)
Quarter: 2013Q3

REPORT INFORMATION
  Report Type: Spontaneous
  Country: FR (occurrence: FR)
  Receive Date: 20130710
  Receipt Date: 20130710
  Transmission Date: 20140515
  Serious: Yes (Other)
  Sender: FDA-Public Use
  Company Number: FR-009507513-1307FRA000924

PATIENT
  Age: 67 Year
  Sex: Female

DRUGS (6)
  1. FOSAVANCE [Suspect]
     Dosage: 70 MG, QW
     Route: 048
  2. LODOZ [Suspect]
     Dosage: UNK
     Route: 048
  3. MEDIATENSYL [Suspect]
     Dosage: 2 DF, QD
     Route: 048
  4. AMLOR [Suspect]
     Dosage: 1 DF, QD
     Route: 048
  5. STILNOX [Suspect]
     Dosage: 1 DF, QD
     Route: 048
  6. EFFERALGAN [Suspect]
     Dosage: UNK
     Route: 048

REACTIONS (1)
  - Thrombocytopenia [Not Recovered/Not Resolved]
